FAERS Safety Report 24560036 (Version 1)
Quarter: 2024Q4

REPORT INFORMATION
  Report Type: Spontaneous
  Country: US (occurrence: US)
  Receive Date: 20241029
  Receipt Date: 20241029
  Transmission Date: 20250114
  Serious: Yes (Other)
  Sender: ALEXION PHARMACEUTICALS
  Company Number: US-ASTRAZENECA-202407GLO002427US

PATIENT

DRUGS (3)
  1. ROSUVASTATIN [Suspect]
     Active Substance: ROSUVASTATIN
  2. VYNDAMAX [Suspect]
     Active Substance: TAFAMIDIS
     Route: 065
  3. TORSEMIDE [Suspect]
     Active Substance: TORSEMIDE
     Route: 065

REACTIONS (3)
  - Pulmonary oedema [Unknown]
  - Constipation [Unknown]
  - Oedema peripheral [Unknown]
